FAERS Safety Report 17314955 (Version 1)
Quarter: 2020Q1

REPORT INFORMATION
  Report Type: Spontaneous
  Country: US (occurrence: US)
  Receive Date: 20200107
  Receipt Date: 20200107
  Transmission Date: 20200409
  Serious: Yes (Hospitalization)
  Sender: FDA-Public Use
  Company Number: None

PATIENT
  Age: 30 Month
  Sex: Male
  Weight: 12.7 kg

DRUGS (4)
  1. VINCRISTINE SULFATE. [Concomitant]
     Active Substance: VINCRISTINE SULFATE
     Dates: end: 20191122
  2. ONCASPAR [Suspect]
     Active Substance: PEGASPARGASE
     Dosage: ?          OTHER DOSE:1425 UNIT;?
     Dates: end: 20191118
  3. CYTARABINE. [Suspect]
     Active Substance: CYTARABINE
     Dates: end: 20191116
  4. DEXAMETHASONE. [Suspect]
     Active Substance: DEXAMETHASONE
     Dates: end: 20191122

REACTIONS (3)
  - Pyrexia [None]
  - Staphylococcus test positive [None]
  - Neutrophil count decreased [None]

NARRATIVE: CASE EVENT DATE: 20191122
